FAERS Safety Report 12296461 (Version 2)
Quarter: 2016Q2

REPORT INFORMATION
  Report Type: Spontaneous
  Country: JP (occurrence: JP)
  Receive Date: 20160422
  Receipt Date: 20160507
  Transmission Date: 20160815
  Serious: Yes (Other)
  Sender: FDA-Public Use
  Company Number: JP-AMGEN-JPNSP2016005076

PATIENT
  Age: 62 Year
  Sex: Male
  Weight: 68 kg

DRUGS (19)
  1. SOL-MELCORT [Concomitant]
     Active Substance: METHYLPREDNISOLONE SODIUM SUCCINATE
     Dosage: 250 MG, QD
     Route: 041
     Dates: start: 20151210, end: 20151210
  2. 5-FU                               /00098801/ [Suspect]
     Active Substance: FLUOROURACIL
     Dosage: 750 MG, UNK
     Route: 041
     Dates: start: 20151207, end: 20151212
  3. POTASSIUM CHLORIDE. [Concomitant]
     Active Substance: POTASSIUM CHLORIDE
     Dosage: 40 MEQ, UNK
     Route: 041
     Dates: start: 20151210, end: 20151210
  4. 5-FU                               /00098801/ [Suspect]
     Active Substance: FLUOROURACIL
     Indication: OROPHARYNGEAL CANCER
     Dosage: UNK
     Route: 041
  5. DEXART [Concomitant]
     Active Substance: DEXAMETHASONE SODIUM PHOSPHATE
     Dosage: 6.6 MG, QD
     Route: 041
     Dates: start: 20151211, end: 20151211
  6. SEISHOKU [Concomitant]
     Active Substance: SODIUM CHLORIDE
     Dosage: 2100 ML, UNK
     Route: 041
     Dates: start: 20151210, end: 20151210
  7. CISPLATIN. [Concomitant]
     Active Substance: CISPLATIN
     Dosage: 123 MG, QD
     Route: 041
     Dates: start: 20151210
  8. DEXART [Concomitant]
     Active Substance: DEXAMETHASONE SODIUM PHOSPHATE
     Dosage: 6.6 MG, QD
     Route: 041
     Dates: start: 20151207, end: 20151209
  9. ALOXI [Concomitant]
     Active Substance: PALONOSETRON HYDROCHLORIDE
     Dosage: UNK UNK, QD
     Route: 041
     Dates: start: 20151210, end: 20151210
  10. FOSMICIN-S [Concomitant]
     Active Substance: FOSFOMYCIN SODIUM
     Dosage: 2 G, BID
     Route: 041
     Dates: start: 20151210, end: 20151210
  11. CISPLATIN. [Concomitant]
     Active Substance: CISPLATIN
     Indication: OROPHARYNGEAL CANCER
     Dosage: UNK
     Route: 041
  12. ONETAXOTERE [Suspect]
     Active Substance: DOCETAXEL
     Indication: OROPHARYNGEAL CANCER
     Dosage: UNK
     Route: 041
  13. SEISHOKU [Concomitant]
     Active Substance: SODIUM CHLORIDE
     Dosage: 50 ML, QD
     Route: 041
     Dates: start: 20151207, end: 20151209
  14. PROEMEND [Concomitant]
     Active Substance: FOSAPREPITANT
     Dosage: UNK, QD
     Route: 041
     Dates: start: 20151210, end: 20151210
  15. G-LASTA [Suspect]
     Active Substance: PEGFILGRASTIM
     Indication: PRODUCT USED FOR UNKNOWN INDICATION
     Dosage: 3.6 MG, QD
     Route: 058
     Dates: start: 20151213, end: 20151213
  16. SEISHOKU [Concomitant]
     Active Substance: SODIUM CHLORIDE
     Dosage: 50 ML, QD
     Route: 041
     Dates: start: 20151211, end: 20151211
  17. ONETAXOTERE [Suspect]
     Active Substance: DOCETAXEL
     Dosage: 106 MG, QD
     Route: 041
     Dates: start: 20151207, end: 20151207
  18. MANNITOL. [Concomitant]
     Active Substance: MANNITOL
     Dosage: UNK, QD
     Route: 041
     Dates: start: 20151210, end: 20151210
  19. RANITIDINE. [Concomitant]
     Active Substance: RANITIDINE
     Dosage: UNK, BID
     Route: 041
     Dates: start: 20151210, end: 20151210

REACTIONS (2)
  - Cholestasis [Recovered/Resolved]
  - Pyrexia [Recovered/Resolved]

NARRATIVE: CASE EVENT DATE: 20151210
